FAERS Safety Report 8254887-5 (Version None)
Quarter: 2012Q2

REPORT INFORMATION
  Report Type: 
  Country: None (occurrence: None)
  Receive Date: 20120403
  Receipt Date: 20120326
  Transmission Date: 20120825
  Serious: No
  Sender: FDA-Public Use
  Company Number: US-PFIZER INC-2012064748

PATIENT
  Sex: Male

DRUGS (6)
  1. PREDNISONE [Suspect]
     Dosage: 4 PILLS FOR 4 DAYS
  2. PREDNISONE [Suspect]
     Dosage: 2 PILLS FOR 4 DAYS
  3. GLIPIZIDE [Suspect]
     Indication: BLOOD GLUCOSE INCREASED
     Dosage: 10 MG, UNK
  4. PREDNISONE [Suspect]
     Dosage: 6 PILLS FOR 4 DAYS
  5. GLIPIZIDE [Suspect]
     Indication: TYPE 2 DIABETES MELLITUS
     Dosage: 2.5 MG, 1X/DAY
  6. INSULIN GLARGINE [Suspect]
     Indication: TYPE 2 DIABETES MELLITUS
     Dosage: 10 UNITS DAILY (100 IU/ML)
     Route: 058
     Dates: start: 20120215

REACTIONS (1)
  - BLOOD GLUCOSE INCREASED [None]
